FAERS Safety Report 10202237 (Version 1)
Quarter: 2014Q2

REPORT INFORMATION
  Report Type: Spontaneous
  Country: US (occurrence: US)
  Receive Date: 20140528
  Receipt Date: 20140528
  Transmission Date: 20141212
  Serious: No
  Sender: FDA-Public Use
  Company Number: US-BRISTOL-MYERS SQUIBB COMPANY-20166021

PATIENT
  Age: 65 Year
  Sex: Male
  Weight: 86.17 kg

DRUGS (2)
  1. METFORMIN HCL [Suspect]
  2. GLUCOZIDE (GLICLAZIDE) [Suspect]

REACTIONS (5)
  - Throat tightness [Unknown]
  - Swelling [Unknown]
  - Arthralgia [Unknown]
  - Myalgia [Unknown]
  - Flatulence [Unknown]
